FAERS Safety Report 4476301-8 (Version None)
Quarter: 2004Q4

REPORT INFORMATION
  Report Type: 
  Country: None (occurrence: None)
  Receive Date: 20041016
  Receipt Date: 20041005
  Transmission Date: 20050328
  Serious: Yes (Hospitalization)
  Sender: FDA-Public Use
  Company Number: JP-MERCK-0410USA00653

PATIENT
  Age: 62 Year
  Sex: Male

DRUGS (4)
  1. 8-HOUR BAYER [Concomitant]
     Route: 048
  2. VASOTEC [Concomitant]
     Route: 048
     Dates: start: 20040712
  3. ZOCOR [Suspect]
     Route: 048
     Dates: start: 20040809, end: 20040930
  4. BASEN [Concomitant]
     Route: 048

REACTIONS (2)
  - ARRHYTHMIA [None]
  - BRADYCARDIA [None]
